FAERS Safety Report 23399435 (Version 1)
Quarter: 2024Q1

REPORT INFORMATION
  Report Type: Spontaneous
  Country: NZ (occurrence: NZ)
  Receive Date: 20240113
  Receipt Date: 20240113
  Transmission Date: 20240410
  Serious: Yes (Hospitalization, Other)
  Sender: FDA-Public Use
  Company Number: NZ-MLMSERVICE-20231229-4748484-1

PATIENT
  Age: 5 Decade
  Sex: Male

DRUGS (7)
  1. TACROLIMUS [Suspect]
     Active Substance: TACROLIMUS
     Indication: Immunosuppressant drug therapy
  2. OMEPRAZOLE [Concomitant]
     Active Substance: OMEPRAZOLE
  3. VILDAGLIPTIN [Concomitant]
     Active Substance: VILDAGLIPTIN
  4. SUMATRIPTAN [Concomitant]
     Active Substance: SUMATRIPTAN
  5. EMPAGLIFLOZIN [Concomitant]
     Active Substance: EMPAGLIFLOZIN
  6. CANDESARTAN [Concomitant]
     Active Substance: CANDESARTAN
  7. DOXYCYCLINE [Concomitant]
     Active Substance: DOXYCYCLINE
     Indication: Prophylaxis

REACTIONS (5)
  - Optic disc haemorrhage [Recovered/Resolved]
  - Retinal oedema [Recovering/Resolving]
  - Cytomegalovirus chorioretinitis [Recovering/Resolving]
  - Optic neuritis [Recovering/Resolving]
  - Retinal haemorrhage [Recovering/Resolving]
